FAERS Safety Report 6232581-X (Version None)
Quarter: 2009Q2

REPORT INFORMATION
  Report Type: 
  Country: None (occurrence: None)
  Receive Date: 20090617
  Receipt Date: 20090605
  Transmission Date: 20091009
  Serious: Yes (Hospitalization, Other)
  Sender: FDA-Public Use
  Company Number: DK-BIOGENIDEC-2009BI001658

PATIENT
  Age: 19 Year
  Sex: Female

DRUGS (19)
  1. TYSABRI [Suspect]
     Indication: MULTIPLE SCLEROSIS
     Route: 042
     Dates: start: 20071011, end: 20081216
  2. GABAPENTIN [Concomitant]
     Dates: end: 20080101
  3. STEROIDS [Concomitant]
     Dates: start: 20080623
  4. STEROIDS [Concomitant]
     Dates: start: 20080704
  5. STEROIDS [Concomitant]
     Dates: start: 20080904
  6. STEROIDS [Concomitant]
     Dates: start: 20081028
  7. STEROIDS [Concomitant]
     Dates: start: 20081107
  8. IMIPRAMINE [Concomitant]
     Dates: end: 20080101
  9. APYDAN [Concomitant]
  10. LYRICA [Concomitant]
  11. PANTOPRAZOLE SODIUM [Concomitant]
  12. IRON C [Concomitant]
  13. MIXT LACTULOSE [Concomitant]
  14. D3 VITAMIN [Concomitant]
  15. IBUMETIN [Concomitant]
  16. DICLOFENAC SODIUM [Concomitant]
  17. IMIVANE 7.5MG [Concomitant]
  18. PINEX [Concomitant]
  19. SAROTEN [Concomitant]

REACTIONS (6)
  - CYSTITIS [None]
  - DRUG INEFFECTIVE [None]
  - HERPES ZOSTER [None]
  - MULTIPLE SCLEROSIS RELAPSE [None]
  - NEUROMYELITIS OPTICA [None]
  - PARAPARESIS [None]
